FAERS Safety Report 7393019-2 (Version None)
Quarter: 2011Q2

REPORT INFORMATION
  Report Type: 
  Country: None (occurrence: None)
  Receive Date: 20110404
  Receipt Date: 20110321
  Transmission Date: 20111010
  Serious: Yes (Other)
  Sender: FDA-Public Use
  Company Number: US-BAYER-2011-025481

PATIENT
  Age: 60 Year
  Sex: Female

DRUGS (1)
  1. CIPRO [Suspect]
     Indication: INFECTION

REACTIONS (3)
  - TENDON PAIN [None]
  - DRUG INEFFECTIVE [None]
  - TENDON RUPTURE [None]
